FAERS Safety Report 18867225 (Version 1)
Quarter: 2021Q1

REPORT INFORMATION
  Report Type: Spontaneous
  Country: US (occurrence: US)
  Receive Date: 20210209
  Receipt Date: 20210209
  Transmission Date: 20210420
  Serious: Yes (Hospitalization)
  Sender: FDA-Public Use
  Company Number: None

PATIENT
  Age: 68 Year
  Sex: Male
  Weight: 92.5 kg

DRUGS (1)
  1. KYMRIAH [Suspect]
     Active Substance: TISAGENLECLEUCEL
     Indication: DIFFUSE LARGE B-CELL LYMPHOMA
     Dosage: ?          OTHER FREQUENCY:4.5X10^8CAR+TONCE;?
     Route: 042
     Dates: start: 20200921, end: 20200921

REACTIONS (5)
  - Tremor [None]
  - Mental status changes [None]
  - Dizziness postural [None]
  - Neurotoxicity [None]
  - Aphasia [None]

NARRATIVE: CASE EVENT DATE: 20201030
